FAERS Safety Report 7032750-5 (Version None)
Quarter: 2010Q4

REPORT INFORMATION
  Report Type: 
  Country: None (occurrence: None)
  Receive Date: 20101007
  Receipt Date: 20100929
  Transmission Date: 20110411
  Serious: No
  Sender: FDA-Public Use
  Company Number: US-PFIZER INC-2010123997

PATIENT
  Sex: Female
  Weight: 61 kg

DRUGS (6)
  1. ALPRAZOLAM [Suspect]
     Indication: DEPRESSION
     Dosage: 0.5 UG, 3X/DAY
     Route: 048
     Dates: start: 20000101
  2. ALPRAZOLAM [Suspect]
     Indication: ANXIETY
     Dosage: UNK
  3. PLAVIX [Concomitant]
     Indication: CARDIAC DISORDER
     Dosage: 75 MG, DAILY
     Route: 048
  4. ACETYLSALICYLIC ACID [Concomitant]
     Dosage: 5 MG, DAILY
     Route: 048
  5. POTASSIUM [Concomitant]
     Indication: DIURETIC THERAPY
     Dosage: UNK, TWO TIMES A DAY
     Route: 048
  6. CALCIUM [Concomitant]
     Dosage: UNK, DAILY

REACTIONS (2)
  - DYSGEUSIA [None]
  - PRODUCT SOLUBILITY ABNORMAL [None]
